FAERS Safety Report 7357357-1 (Version None)
Quarter: 2011Q1

REPORT INFORMATION
  Report Type: 
  Country: None (occurrence: None)
  Receive Date: 20110307
  Receipt Date: 20110223
  Transmission Date: 20110831
  Serious: Yes (Hospitalization)
  Sender: FDA-Public Use
  Company Number: KR-004842

PATIENT
  Age: 40 Year
  Sex: Female

DRUGS (4)
  1. MENOTROPINS [Suspect]
     Indication: IN VITRO FERTILISATION
     Dosage: 500 IU QD DURING EACH CYCLE SHE RECEIVED DAILY MENOTROPIN 500 IU ON MENSTRUAL CYCLE DAYS 3-15
     Dates: start: 20080501, end: 20080501
  2. CHORIONIC GONADOTROPIN [Concomitant]
  3. CHORIONIC GONADOTROPIN [Suspect]
     Indication: IN VITRO FERTILISATION
     Dosage: 5000 IU TOTAL, ADMINISTERED ON DAY 16
     Dates: start: 20080501, end: 20080501
  4. PROGESTERONE [Suspect]
     Indication: IN VITRO FERTILISATION
     Dosage: 50 MG QD

REACTIONS (4)
  - RENAL FAILURE ACUTE [None]
  - MULTI-ORGAN FAILURE [None]
  - CONTINUOUS HAEMODIAFILTRATION [None]
  - DISSEMINATED INTRAVASCULAR COAGULATION [None]
